FAERS Safety Report 5101379-8 (Version None)
Quarter: 2006Q3

REPORT INFORMATION
  Report Type: 
  Country: None (occurrence: None)
  Receive Date: 20060906
  Receipt Date: 20060823
  Transmission Date: 20061208
  Serious: Yes (Death)
  Sender: FDA-Public Use
  Company Number: 2006102969

PATIENT

DRUGS (3)
  1. LINEZOLID [Suspect]
     Indication: SEPTIC SHOCK
  2. ANTIINFLAMMATORY/-ANTIRHEUMATIC NON-STEROIDS (ANTIINFLAMMATORY-/ANTIRH [Concomitant]
  3. ALL OTHER THERAPEUTIC PRODUCTS (ALL OTHER THERAPEUTIC PRODUCTS) [Concomitant]

REACTIONS (1)
  - FUNGAL INFECTION [None]
